FAERS Safety Report 15532300 (Version 1)
Quarter: 2018Q4

REPORT INFORMATION
  Report Type: Spontaneous
  Country: JP (occurrence: JP)
  Receive Date: 20181019
  Receipt Date: 20181019
  Transmission Date: 20190205
  Serious: Yes (Other)
  Sender: FDA-Public Use
  Company Number: JP-GLAXOSMITHKLINE-JP2018GSK188876

PATIENT
  Age: 14 Year
  Sex: Female

DRUGS (1)
  1. OMEGA-3-ACID ETHYL ESTERS. [Suspect]
     Active Substance: OMEGA-3-ACID ETHYL ESTERS
     Indication: SUICIDE ATTEMPT
     Dosage: 2 G, UNK
     Route: 048

REACTIONS (4)
  - Toxicity to various agents [Unknown]
  - Off label use [Unknown]
  - Intentional product misuse [Unknown]
  - Product administered to patient of inappropriate age [Unknown]
